FAERS Safety Report 5805397-3 (Version None)
Quarter: 2008Q3

REPORT INFORMATION
  Report Type: 
  Country: None (occurrence: None)
  Receive Date: 20080710
  Receipt Date: 20080708
  Transmission Date: 20090109
  Serious: Yes (Other)
  Sender: FDA-Public Use
  Company Number: US-BRISTOL-MYERS SQUIBB COMPANY-14253819

PATIENT
  Age: 31 Year
  Sex: Female
  Weight: 68 kg

DRUGS (9)
  1. CYTOXAN [Suspect]
     Indication: BREAST CANCER
     Dates: start: 20080201
  2. ADRIAMYCIN PFS [Suspect]
     Indication: BREAST CANCER
     Dates: start: 20080201
  3. DOCETAXEL [Suspect]
     Indication: BREAST CANCER
     Dosage: INITIATED IN FEB2008.SOLUTION FOR INFUSION.REPORTED DOSAGE 75MG/M2 PER DOSE. 3 CYC
     Dates: start: 20080401, end: 20080401
  4. ZOFRAN [Concomitant]
  5. DEXAMETHASONE [Concomitant]
  6. EMEND [Concomitant]
  7. ATIVAN [Concomitant]
  8. NEULASTA [Concomitant]
  9. LEUPROLIDE ACETATE [Concomitant]

REACTIONS (3)
  - ATRIAL FIBRILLATION [None]
  - CARDIOTOXICITY [None]
  - TACHYCARDIA [None]
